FAERS Safety Report 10693574 (Version 2)
Quarter: 2015Q1

REPORT INFORMATION
  Report Type: Report from Study
  Country: FR (occurrence: FR)
  Receive Date: 20150106
  Receipt Date: 20150326
  Transmission Date: 20150721
  Serious: Yes (Other)
  Sender: FDA-Public Use
  Company Number: FR-MYLANLABS-2014M1015848

PATIENT

DRUGS (3)
  1. PRETERAX                           /01421201/ [Concomitant]
     Active Substance: INDAPAMIDE\PERINDOPRIL
     Dosage: UNK, QD
  2. FONDAPARINUX [Suspect]
     Active Substance: FONDAPARINUX
     Indication: VENOUS THROMBOSIS
     Dosage: 2.5 MG, QD
     Route: 058
     Dates: start: 20140919, end: 20141017
  3. FONDAPARINUX [Suspect]
     Active Substance: FONDAPARINUX
     Dosage: 2.5 UNK, UNK
     Route: 058
     Dates: start: 20141107, end: 20141125

REACTIONS (1)
  - Thrombophlebitis superficial [Recovered/Resolved with Sequelae]

NARRATIVE: CASE EVENT DATE: 20141107
